FAERS Safety Report 8510178-6 (Version None)
Quarter: 2012Q3

REPORT INFORMATION
  Report Type: 
  Country: None (occurrence: None)
  Receive Date: 20120713
  Receipt Date: 20120706
  Transmission Date: 20120928
  Serious: Yes (Hospitalization, Disabling, Other)
  Sender: FDA-Public Use
  Company Number: US-US-EMD SERONO, INC.-7146292

PATIENT
  Sex: Male
  Weight: 77 kg

DRUGS (2)
  1. REBIF [Suspect]
     Indication: MULTIPLE SCLEROSIS
     Route: 058
     Dates: start: 20090107
  2. IBUPROFEN [Concomitant]
     Indication: PREMEDICATION

REACTIONS (9)
  - INJECTION SITE ERYTHEMA [None]
  - SLEEP APNOEA SYNDROME [None]
  - SKIN DISORDER [None]
  - VOMITING [None]
  - PNEUMONIA [None]
  - ASPIRATION [None]
  - MULTIPLE SCLEROSIS [None]
  - WEIGHT DECREASED [None]
  - MULTIPLE SCLEROSIS RELAPSE [None]
